FAERS Safety Report 8572972-5 (Version None)
Quarter: 2012Q3

REPORT INFORMATION
  Report Type: 
  Country: None (occurrence: None)
  Receive Date: 20120806
  Receipt Date: 20120730
  Transmission Date: 20120928
  Serious: Yes (Other)
  Sender: FDA-Public Use
  Company Number: US-BAYER-2011-071650

PATIENT
  Age: 20 Year
  Sex: Female
  Weight: 63.492 kg

DRUGS (2)
  1. ZITHROMAX [Concomitant]
     Dosage: 1 MG, UNK
     Route: 048
     Dates: start: 20110524
  2. MIRENA [Suspect]
     Indication: CONTRACEPTION
     Dosage: UNK
     Route: 015
     Dates: start: 20110520, end: 20110720

REACTIONS (3)
  - VAGINAL HAEMORRHAGE [None]
  - PREGNANCY WITH CONTRACEPTIVE DEVICE [None]
  - ABORTION SPONTANEOUS [None]
